FAERS Safety Report 26179092 (Version 1)
Quarter: 2025Q4

REPORT INFORMATION
  Report Type: Spontaneous
  Country: EU (occurrence: EU)
  Receive Date: 20251219
  Receipt Date: 20251219
  Transmission Date: 20260118
  Serious: Yes (Hospitalization)
  Sender: RANBAXY
  Company Number: EU-AFSSAPS-PP2025000969

PATIENT
  Age: 57 Year
  Sex: Female
  Weight: 83 kg

DRUGS (3)
  1. CIPROFLOXACIN [Suspect]
     Active Substance: CIPROFLOXACIN
     Indication: Infection prophylaxis
     Dosage: 500 MILLIGRAM, DAILY
     Route: 048
     Dates: start: 20250115
  2. RIFAMPIN [Suspect]
     Active Substance: RIFAMPIN
     Indication: Granulomatous liver disease
     Dosage: 600 MILLIGRAM, 300 MG / 2 TIMES A DAY
     Route: 048
     Dates: start: 20250404
  3. ISONIAZID [Suspect]
     Active Substance: ISONIAZID
     Indication: Granulomatous liver disease
     Dosage: 300 MILLIGRAM, DAILY (150 MG / 2 TIMES A DAY)
     Route: 048
     Dates: start: 20250404

REACTIONS (1)
  - Hyperbilirubinaemia [Recovering/Resolving]

NARRATIVE: CASE EVENT DATE: 20250408
